FAERS Safety Report 9504098 (Version 1)
Quarter: 2013Q3

REPORT INFORMATION
  Report Type: Spontaneous
  Country: US (occurrence: US)
  Receive Date: 20130906
  Receipt Date: 20130906
  Transmission Date: 20140515
  Serious: Yes (Hospitalization)
  Sender: FDA-Public Use
  Company Number: US-BAYER-2013-107612

PATIENT
  Age: 45 Year
  Sex: Male
  Weight: 86.17 kg

DRUGS (5)
  1. BAYER ASPIRIN REGIMEN ADULT LOW STRENGTH [Suspect]
     Dosage: UNK
     Route: 048
     Dates: start: 20130322
  2. BAYER ASPIRIN REGIMEN ADULT LOW STRENGTH [Suspect]
     Dosage: 4 DF, UNK
  3. BAYER ASPIRIN REGIMEN ADULT LOW STRENGTH [Suspect]
     Dosage: 1 DF, QID
  4. BAYER GENUINE ASPIRIN ORIGINAL STRENGTH [Suspect]
     Indication: MYOCARDIAL INFARCTION
     Dosage: UNK
     Route: 048
     Dates: start: 20130322
  5. NITROGLYCERIN [Concomitant]

REACTIONS (8)
  - Chest pain [Recovered/Resolved]
  - Myocardial infarction [None]
  - Hyperhidrosis [Recovered/Resolved]
  - Headache [Recovered/Resolved]
  - Chest pain [Recovered/Resolved]
  - Off label use [None]
  - Neck pain [Recovered/Resolved]
  - Musculoskeletal pain [Recovered/Resolved]
